FAERS Safety Report 15295788 (Version 1)
Quarter: 2018Q3

REPORT INFORMATION
  Report Type: Spontaneous
  Country: IT (occurrence: IT)
  Receive Date: 20180820
  Receipt Date: 20180820
  Transmission Date: 20181010
  Serious: Yes (Other)
  Sender: FDA-Public Use
  Company Number: PHHY2018IT073602

PATIENT
  Age: 69 Year
  Sex: Male

DRUGS (1)
  1. ZOLEDRONIC ACID [Suspect]
     Active Substance: ZOLEDRONIC ACID
     Indication: PLASMA CELL MYELOMA
     Dosage: 4 MG, CYCLIC
     Route: 042
     Dates: start: 20030101, end: 20160101

REACTIONS (3)
  - Osteolysis [Recovered/Resolved]
  - Osteonecrosis of jaw [Recovered/Resolved]
  - Fistula [Recovered/Resolved]

NARRATIVE: CASE EVENT DATE: 20160308
